FAERS Safety Report 12239166 (Version 2)
Quarter: 2016Q2

REPORT INFORMATION
  Report Type: Spontaneous
  Country: TR (occurrence: TR)
  Receive Date: 20160405
  Receipt Date: 20160406
  Transmission Date: 20160815
  Serious: Yes (Life-Threatening, Hospitalization, Other)
  Sender: FDA-Public Use
  Company Number: TR-JNJFOC-20160328953

PATIENT
  Age: 22 Year
  Sex: Male

DRUGS (5)
  1. FAVERIN [Concomitant]
     Active Substance: FLUVOXAMINE MALEATE
     Indication: UNEVALUABLE EVENT
     Route: 048
  2. DEPREKS [Concomitant]
     Indication: UNEVALUABLE EVENT
     Route: 048
  3. XEPLION [Suspect]
     Active Substance: PALIPERIDONE PALMITATE
     Indication: BIPOLAR DISORDER
     Route: 030
     Dates: start: 20160308
  4. FAVERIN [Concomitant]
     Active Substance: FLUVOXAMINE MALEATE
     Indication: UNEVALUABLE EVENT
     Route: 048
  5. DEPREKS [Concomitant]
     Indication: UNEVALUABLE EVENT
     Route: 048

REACTIONS (7)
  - Muscle spasms [Unknown]
  - Condition aggravated [Unknown]
  - Hypersomnia [Unknown]
  - Staring [Unknown]
  - Apnoea [Unknown]
  - Off label use [Unknown]
  - Product use issue [Unknown]

NARRATIVE: CASE EVENT DATE: 20160308
